FAERS Safety Report 9376502 (Version 1)
Quarter: 2013Q3

REPORT INFORMATION
  Report Type: Spontaneous
  Country: FR (occurrence: FR)
  Receive Date: 20130701
  Receipt Date: 20130701
  Transmission Date: 20140515
  Serious: Yes (Other)
  Sender: FDA-Public Use
  Company Number: FR-GE HEALTHCARE MEDICAL DIAGNOSTICS-VISP-NO-1306S-0705

PATIENT
  Age: 75 Year
  Sex: Male

DRUGS (12)
  1. VISIPAQUE [Suspect]
     Indication: PRODUCT USED FOR UNKNOWN INDICATION
     Route: 065
     Dates: start: 20130527, end: 20130527
  2. VISIPAQUE [Suspect]
     Indication: DIAGNOSTIC PROCEDURE
  3. AMLODIPINE ARROW [Concomitant]
  4. INEXIUM [Concomitant]
  5. KARDEGIC [Concomitant]
  6. KAYEXALATE [Concomitant]
  7. PLAVIX [Concomitant]
  8. TAHOR [Concomitant]
  9. TANGANIL [Concomitant]
  10. TRIATEC [Concomitant]
  11. INSULINE [Concomitant]
  12. NICARDIPINE [Concomitant]

REACTIONS (5)
  - Erythema [Recovering/Resolving]
  - Pruritus [Recovering/Resolving]
  - Skin warm [Recovering/Resolving]
  - Epidermolysis [Recovering/Resolving]
  - Chills [Recovering/Resolving]
